FAERS Safety Report 15462289 (Version 1)
Quarter: 2018Q4

REPORT INFORMATION
  Report Type: Spontaneous
  Country: US (occurrence: US)
  Receive Date: 20181001
  Receipt Date: 20181001
  Transmission Date: 20190204
  Serious: Yes (Hospitalization)
  Sender: FDA-Public Use
  Company Number: None

PATIENT
  Age: 26 Year
  Sex: Male

DRUGS (8)
  1. TOBRAMYCIN 300MG/5ML [Concomitant]
     Active Substance: TOBRAMYCIN
  2. ONDANSETRON TAB 4MG ODT [Concomitant]
  3. CIPROFLOXACIN TAB 750MG [Concomitant]
  4. MINOCYCLINE TAB 100MG [Concomitant]
  5. PULMOZYME [Suspect]
     Active Substance: DORNASE ALFA
     Indication: CYSTIC FIBROSIS
     Route: 055
     Dates: start: 20171019
  6. GAVILYTE-G SOL [Concomitant]
  7. DRONABINOL CAP 10MG [Concomitant]
  8. NOVOLOG INJ FLEXPEN [Concomitant]

REACTIONS (1)
  - Catheter placement [None]

NARRATIVE: CASE EVENT DATE: 20180928
